FAERS Safety Report 5406213-4 (Version None)
Quarter: 2007Q3

REPORT INFORMATION
  Report Type: 
  Country: None (occurrence: None)
  Receive Date: 20070806
  Receipt Date: 20070724
  Transmission Date: 20080115
  Serious: Yes (Life-Threatening)
  Sender: FDA-Public Use
  Company Number: GB-MERCK-0707GBR00098

PATIENT
  Age: 64 Year
  Sex: Male

DRUGS (6)
  1. ZOCOR [Suspect]
     Route: 048
  2. CLARITHROMYCIN [Suspect]
     Indication: PNEUMONIA
     Route: 042
     Dates: start: 20070614, end: 20070628
  3. ALLOPURINOL [Concomitant]
     Indication: GOUT
     Route: 048
  4. ASPIRIN [Concomitant]
     Indication: DRESSLER'S SYNDROME
     Route: 048
  5. ATENOLOL [Concomitant]
     Route: 048
  6. BISOPROLOL [Concomitant]
     Route: 048

REACTIONS (2)
  - RENAL FAILURE [None]
  - RHABDOMYOLYSIS [None]
